FAERS Safety Report 8531459-6 (Version None)
Quarter: 2012Q3

REPORT INFORMATION
  Report Type: 
  Country: None (occurrence: None)
  Receive Date: 20120723
  Receipt Date: 20120712
  Transmission Date: 20120928
  Serious: Yes (Hospitalization)
  Sender: FDA-Public Use
  Company Number: JP-VERTEX PHARMACEUTICALS INC.-AE-2012-006224

PATIENT
  Age: 64 Year
  Sex: Female

DRUGS (13)
  1. LORFENAMIN [Concomitant]
     Route: 048
     Dates: start: 20120307
  2. GASCON [Concomitant]
     Route: 048
     Dates: start: 20120313, end: 20120320
  3. TELAVIC (TELAPREVIR) [Suspect]
     Route: 048
     Dates: start: 20120330, end: 20120402
  4. PEG-INTRON [Concomitant]
     Route: 051
     Dates: start: 20120307
  5. LOPERAMIDE HYDROCHLORIDE [Concomitant]
     Route: 048
     Dates: start: 20120319, end: 20120411
  6. TELAVIC (TELAPREVIR) [Suspect]
     Indication: HEPATITIS C
     Route: 048
     Dates: start: 20120307, end: 20120326
  7. PROMACTA [Concomitant]
     Route: 048
     Dates: start: 20120307
  8. PRIMPERAN TAB [Concomitant]
     Route: 048
     Dates: start: 20120315
  9. REBETOL [Concomitant]
     Route: 048
     Dates: start: 20120307, end: 20120320
  10. LAC-B [Concomitant]
     Route: 048
     Dates: start: 20120319
  11. REBETOL [Concomitant]
     Route: 048
     Dates: start: 20120404
  12. TOUGHMAC E [Concomitant]
     Route: 048
     Dates: start: 20120307
  13. AVAPRO [Concomitant]
     Route: 048
     Dates: start: 20120313

REACTIONS (1)
  - DECREASED APPETITE [None]
